FAERS Safety Report 21271660 (Version 1)
Quarter: 2022Q3

REPORT INFORMATION
  Report Type: Spontaneous
  Country: US (occurrence: US)
  Receive Date: 20220830
  Receipt Date: 20220830
  Transmission Date: 20221026
  Serious: Yes (Hospitalization)
  Sender: FDA-Public Use
  Company Number: US-MYLANLABS-2022M1090413

PATIENT
  Age: 76 Year
  Sex: Female

DRUGS (1)
  1. LEVOTHYROXINE [Suspect]
     Active Substance: LEVOTHYROXINE
     Indication: Hypothyroidism
     Dosage: 25 MICROGRAM, QD (SHE HAD BEEN NON-COMPLIANT WITH HER HOME LEVOTHYROXINE SODIUM...
     Route: 065

REACTIONS (1)
  - Intentional product misuse [Unknown]
